FAERS Safety Report 12683598 (Version 1)
Quarter: 2016Q3

REPORT INFORMATION
  Report Type: Report from Study
  Country: US (occurrence: US)
  Receive Date: 20160825
  Receipt Date: 20160825
  Transmission Date: 20161109
  Serious: Yes (Hospitalization)
  Sender: FDA-Public Use
  Company Number: US-AMAG PHARMACEUTICALS, INC.-AMAG201600818

PATIENT

DRUGS (1)
  1. MAKENA [Suspect]
     Active Substance: HYDROXYPROGESTERONE CAPROATE
     Indication: PRODUCT USED FOR UNKNOWN INDICATION
     Dosage: UNK
     Route: 065
     Dates: start: 20160503

REACTIONS (4)
  - Uterine contractions during pregnancy [Unknown]
  - Dizziness [Unknown]
  - Abdominal discomfort [Unknown]
  - Uterine contractions during pregnancy [Unknown]

NARRATIVE: CASE EVENT DATE: 20060726
